FAERS Safety Report 19603403 (Version 1)
Quarter: 2021Q3

REPORT INFORMATION
  Report Type: Spontaneous
  Country: US (occurrence: US)
  Receive Date: 20210723
  Receipt Date: 20210723
  Transmission Date: 20211014
  Serious: No
  Sender: FDA-Public Use
  Company Number: US-GLAXOSMITHKLINE-US2021155741

PATIENT
  Sex: Female

DRUGS (1)
  1. FLONASE SENSIMIST ALLERGY RELIEF [Suspect]
     Active Substance: FLUTICASONE FUROATE
     Indication: PULMONARY CONGESTION
     Dosage: UNK
     Dates: start: 20210718, end: 20210718

REACTIONS (2)
  - Insomnia [Unknown]
  - Product use in unapproved indication [Unknown]
